FAERS Safety Report 6744106-0 (Version None)
Quarter: 2010Q2

REPORT INFORMATION
  Report Type: 
  Country: None (occurrence: None)
  Receive Date: 20100527
  Receipt Date: 20100518
  Transmission Date: 20101027
  Serious: Yes (Hospitalization)
  Sender: FDA-Public Use
  Company Number: A0861366A

PATIENT
  Age: 70 Year
  Sex: Female

DRUGS (6)
  1. ADVAIR DISKUS 100/50 [Suspect]
     Indication: CHRONIC OBSTRUCTIVE PULMONARY DISEASE
     Route: 055
     Dates: start: 20090101
  2. SPIRIVA [Suspect]
     Indication: CHRONIC OBSTRUCTIVE PULMONARY DISEASE
     Dosage: 18MCG PER DAY
     Route: 055
     Dates: start: 20090101
  3. CALCIUM + VITAMIN D [Concomitant]
  4. ATENOLOL [Concomitant]
  5. LOVASTATIN [Concomitant]
  6. NORVASC [Concomitant]

REACTIONS (6)
  - DRY MOUTH [None]
  - DYSPHONIA [None]
  - LUNG LOBECTOMY [None]
  - NON-SMALL CELL LUNG CANCER [None]
  - ORAL CANDIDIASIS [None]
  - SMALL CELL CARCINOMA [None]
